FAERS Safety Report 8813640 (Version 5)
Quarter: 2018Q1

REPORT INFORMATION
  Report Type: Spontaneous
  Country: US (occurrence: US)
  Receive Date: 20120927
  Receipt Date: 20180131
  Transmission Date: 20180509
  Serious: Yes (Other)
  Sender: FDA-Public Use
  Company Number: US-MERCK-1209USA009470

PATIENT
  Sex: Female

DRUGS (12)
  1. FOSAMAX [Suspect]
     Active Substance: ALENDRONATE SODIUM
     Indication: OSTEOPOROSIS
     Dosage: UNK, UNKNOWN
     Route: 048
     Dates: start: 199511, end: 200508
  2. CHONDROITIN SULFATE SODIUM (+) GLUCOSAMINE SULFATE [Concomitant]
     Route: 065
  3. FOLIC ACID. [Concomitant]
     Active Substance: FOLIC ACID
     Route: 065
  4. CYANOCOBALAMIN. [Concomitant]
     Active Substance: CYANOCOBALAMIN
     Route: 065
  5. ZANTAC [Concomitant]
     Active Substance: RANITIDINE HYDROCHLORIDE
     Dosage: 300 MG, TAKEN WITH ASPIRIN
     Route: 065
  6. TAMOXIFEN [Concomitant]
     Active Substance: TAMOXIFEN
     Indication: BREAST CANCER
     Dosage: UNK
     Route: 065
  7. FOSAMAX PLUS D [Suspect]
     Active Substance: ALENDRONATE SODIUM\CHOLECALCIFEROL
     Indication: OSTEOPOROSIS
     Route: 048
  8. BONIVA [Suspect]
     Active Substance: IBANDRONATE SODIUM
     Indication: OSTEOPOROSIS
     Dosage: UNK
     Route: 048
     Dates: start: 2008, end: 2011
  9. CALCIUM (UNSPECIFIED) [Concomitant]
     Active Substance: CALCIUM
     Route: 065
  10. VITAMIN D [Concomitant]
     Active Substance: CHOLECALCIFEROL
     Route: 065
  11. ASPIRIN. [Concomitant]
     Active Substance: ASPIRIN
     Route: 065
  12. OMEGA-3 MARINE TRIGLYCERIDES [Concomitant]
     Active Substance: FISH OIL
     Route: 065

REACTIONS (57)
  - Femur fracture [Recovered/Resolved]
  - Scoliosis [Unknown]
  - Trigger finger [Unknown]
  - Bursitis [Unknown]
  - Urinary tract infection [Unknown]
  - Oesophageal spasm [Unknown]
  - Cholelithiasis [Unknown]
  - Herpes zoster [Unknown]
  - Adverse drug reaction [Unknown]
  - Dyspnoea [Unknown]
  - Intervertebral disc degeneration [Unknown]
  - Oophorectomy [Unknown]
  - Gastritis [Unknown]
  - Tendon sheath incision [Unknown]
  - Back pain [Unknown]
  - Bone pain [Unknown]
  - Rash [Unknown]
  - Myalgia [Unknown]
  - Lumbar spinal stenosis [Unknown]
  - Spinal column stenosis [Unknown]
  - Anxiety [Unknown]
  - Depression [Unknown]
  - Wrist fracture [Unknown]
  - Drug hypersensitivity [Unknown]
  - Aortic arteriosclerosis [Unknown]
  - Compression fracture [Unknown]
  - Arteriosclerosis [Unknown]
  - Injury [Unknown]
  - Hypercholesterolaemia [Unknown]
  - Laceration [Recovered/Resolved]
  - Patella fracture [Unknown]
  - Spinal osteoarthritis [Unknown]
  - Urogenital atrophy [Unknown]
  - Bone pain [Unknown]
  - Atrial fibrillation [Unknown]
  - Diverticulum [Unknown]
  - Macular degeneration [Unknown]
  - Osteoarthritis [Unknown]
  - Tinnitus [Unknown]
  - Muscular weakness [Unknown]
  - Areflexia [Unknown]
  - Spondylolisthesis [Unknown]
  - Cataract operation [Unknown]
  - Fatigue [Unknown]
  - Anaemia [Unknown]
  - Joint contracture [Unknown]
  - Polyp [Unknown]
  - Gastrooesophageal reflux disease [Unknown]
  - Pain in extremity [Unknown]
  - Osteoarthritis [Unknown]
  - Post herpetic neuralgia [Unknown]
  - Malaise [Unknown]
  - Abscess [Unknown]
  - Arthritis [Unknown]
  - Radicular pain [Unknown]
  - Spinal claudication [Unknown]
  - Musculoskeletal disorder [Unknown]

NARRATIVE: CASE EVENT DATE: 2001
